FAERS Safety Report 5702920-4 (Version None)
Quarter: 2008Q2

REPORT INFORMATION
  Report Type: 
  Country: None (occurrence: None)
  Receive Date: 20080411
  Receipt Date: 20080401
  Transmission Date: 20081010
  Serious: Yes (Death)
  Sender: FDA-Public Use
  Company Number: US-MERCK-0804USA00456

PATIENT
  Sex: Male

DRUGS (2)
  1. VYTORIN [Suspect]
     Route: 048
  2. ZETIA [Suspect]
     Route: 048

REACTIONS (1)
  - DEATH [None]
